FAERS Safety Report 11044332 (Version 2)
Quarter: 2015Q2

REPORT INFORMATION
  Report Type: Spontaneous
  Country: JP (occurrence: None)
  Receive Date: 20150415
  Receipt Date: 20150421
  Transmission Date: 20150821
  Serious: Yes (Other)
  Sender: FDA-Public Use
  Company Number: 2015FE01149

PATIENT
  Age: 66 Year
  Sex: Male

DRUGS (8)
  1. ODYNE (FLUTAMIDE) [Concomitant]
  2. CASODEX [Concomitant]
     Active Substance: BICALUTAMIDE
  3. PRECIPITATED CALCIUM CARBONATE (CALCIUM CARBONATE) [Concomitant]
  4. GONAX (DEGARELIX) POWDER AND SOLVENT FOR SOLUTION FOR INJECTION [Suspect]
     Active Substance: DEGARELIX
     Indication: PROSTATE CANCER
     Dates: start: 201307
  5. TAMSULOSIN [Concomitant]
     Active Substance: TAMSULOSIN
  6. RANMARK (DENOSUMAB) [Concomitant]
     Active Substance: DENOSUMAB
  7. ZOMETA [Concomitant]
     Active Substance: ZOLEDRONIC ACID
  8. ALFAROL [Concomitant]
     Active Substance: ALFACALCIDOL

REACTIONS (7)
  - Pollakiuria [None]
  - Nocturia [None]
  - Insomnia [None]
  - Prostatic specific antigen increased [None]
  - Hepatic function abnormal [None]
  - Fracture [None]
  - Post-traumatic neck syndrome [None]

NARRATIVE: CASE EVENT DATE: 2014
